FAERS Safety Report 5322588-9 (Version None)
Quarter: 2007Q2

REPORT INFORMATION
  Report Type: 
  Country: None (occurrence: None)
  Receive Date: 20070507
  Receipt Date: 20070427
  Transmission Date: 20071010
  Serious: Yes (Other)
  Sender: FDA-Public Use
  Company Number: 2007SP008193

PATIENT
  Age: 50 Year
  Sex: Male
  Weight: 94.4 kg

DRUGS (4)
  1. PEG-INTRON [Suspect]
     Indication: HEPATITIS C
     Dosage: 150 MCG;QW;SC
     Route: 058
     Dates: start: 20070424, end: 20070427
  2. RIBAVIRIN [Suspect]
     Indication: HEPATITIS C
     Dosage: 600 MG;BID;PO
     Route: 048
     Dates: start: 20070424, end: 20070427
  3. ALEVE [Concomitant]
  4. MULTI-VITAMIN [Concomitant]

REACTIONS (3)
  - DIPLOPIA [None]
  - IIIRD NERVE PARALYSIS [None]
  - VISUAL DISTURBANCE [None]
